FAERS Safety Report 6221715-9 (Version None)
Quarter: 2009Q2

REPORT INFORMATION
  Report Type: 
  Country: None (occurrence: None)
  Receive Date: 20090608
  Receipt Date: 20090604
  Transmission Date: 20091009
  Serious: No
  Sender: FDA-Public Use
  Company Number: C-09-0136

PATIENT
  Age: 71 Year
  Sex: Female
  Weight: 52.6173 kg

DRUGS (5)
  1. GENERLAC [Suspect]
     Indication: CONSTIPATION
     Dosage: 15ML/ORAL (047)
     Route: 048
     Dates: start: 20090522
  2. DIFLUCAN [Concomitant]
  3. THYROID TAB [Concomitant]
  4. OIL OF OREGANO [Concomitant]
  5. ELECTROLYTE REPLACEMENT SOLUTION [Concomitant]

REACTIONS (2)
  - CONDITION AGGRAVATED [None]
  - VULVOVAGINAL MYCOTIC INFECTION [None]
